FAERS Safety Report 20797711 (Version 2)
Quarter: 2022Q2

REPORT INFORMATION
  Report Type: Report from Study
  Country: US (occurrence: US)
  Receive Date: 20220506
  Receipt Date: 20220609
  Transmission Date: 20220721
  Serious: Yes (Hospitalization)
  Sender: FDA-Public Use
  Company Number: US-ABBVIE-22P-163-4380931-00

PATIENT
  Age: 58 Year
  Sex: Female
  Weight: 64.5 kg

DRUGS (3)
  1. VENETOCLAX [Suspect]
     Active Substance: VENETOCLAX
     Indication: Chronic lymphocytic leukaemia
     Dosage: 20MG D1-7 C3, 50MG D8-14 C3, 100 ON D15-21 C3, 200 ON D22-28 C3, 400 ON D1-28 C4-14
     Route: 048
     Dates: start: 20220311, end: 20220331
  2. IBRUTINIB [Suspect]
     Active Substance: IBRUTINIB
     Indication: Chronic lymphocytic leukaemia
     Dosage: DAYS 1-28, CYCLES 1-19
     Route: 048
     Dates: start: 20220311, end: 20220331
  3. OBINUTUZUMAB [Concomitant]
     Active Substance: OBINUTUZUMAB
     Indication: Chronic lymphocytic leukaemia
     Dosage: 100 MG ON D1 C1, 900 MG ON D2 C1, 1000 MG ON D8 C1, 1000 MG ON D15 C1
     Route: 042
     Dates: start: 20210316, end: 20220310

REACTIONS (3)
  - Pneumonitis [Unknown]
  - Sepsis [Recovered/Resolved]
  - Bacteraemia [Recovered/Resolved]

NARRATIVE: CASE EVENT DATE: 20220402
